FAERS Safety Report 18833647 (Version 1)
Quarter: 2021Q1

REPORT INFORMATION
  Report Type: Other
  Country: DE (occurrence: DE)
  Receive Date: 20210203
  Receipt Date: 20210203
  Transmission Date: 20210419
  Serious: Yes (Hospitalization, Other)
  Sender: FDA-Public Use
  Company Number: DE-STRIDES ARCOLAB LIMITED-2021SP001198

PATIENT
  Age: 27 Year
  Sex: Female
  Weight: 67 kg

DRUGS (4)
  1. UTROGEST [Suspect]
     Active Substance: PROGESTERONE
     Indication: HAEMORRHAGE IN PREGNANCY
     Dosage: 100 MILLIGRAM, 200 (MG/D (100?0?100)),  6.3. ? 6.5. GESTATIONAL WEEK (1 TRIMESTER)
     Route: 067
     Dates: start: 20190730, end: 20190801
  2. EUTHYROX [Suspect]
     Active Substance: LEVOTHYROXINE SODIUM
     Indication: THYROID HORMONE REPLACEMENT THERAPY
     Dosage: UNK (150 MCG/DAY ((BIS 112 MCG/D)
     Route: 048
     Dates: start: 20190615, end: 20190910
  3. GABAPENTIN. [Suspect]
     Active Substance: GABAPENTIN
     Indication: TENSION HEADACHE
     Dosage: 900 MILLIGRAM/DAY (300?0?600 MG)
     Route: 048
     Dates: start: 20190615, end: 20190716
  4. ESCITALOPRAM [Suspect]
     Active Substance: ESCITALOPRAM OXALATE
     Indication: TENSION HEADACHE
     Dosage: 5 MILLIGRAM PER DAY
     Route: 048
     Dates: start: 20190615, end: 20190716

REACTIONS (5)
  - Oligohydramnios [Recovered/Resolved]
  - Maternal exposure during pregnancy [Unknown]
  - Haemorrhage in pregnancy [Recovered/Resolved]
  - Hydrops foetalis [Unknown]
  - Retroplacental haematoma [Unknown]

NARRATIVE: CASE EVENT DATE: 2019
